FAERS Safety Report 19666951 (Version 3)
Quarter: 2021Q3

REPORT INFORMATION
  Report Type: Spontaneous
  Country: US (occurrence: US)
  Receive Date: 20210806
  Receipt Date: 20210903
  Transmission Date: 20211014
  Serious: No
  Sender: FDA-Public Use
  Company Number: US-GLAXOSMITHKLINE-US2021163877

PATIENT
  Age: 34 Year
  Sex: Female

DRUGS (1)
  1. BENLYSTA [Suspect]
     Active Substance: BELIMUMAB
     Indication: SYSTEMIC LUPUS ERYTHEMATOSUS
     Dosage: 200 MG, WE
     Route: 058
     Dates: start: 202107

REACTIONS (7)
  - Incorrect dose administered [Recovered/Resolved]
  - Accidental exposure to product [Recovered/Resolved]
  - Palpitations [Unknown]
  - Anxiety [Unknown]
  - Exposure via skin contact [Recovered/Resolved]
  - Device use error [Unknown]
  - Wrong technique in device usage process [Recovered/Resolved]

NARRATIVE: CASE EVENT DATE: 20210730
